FAERS Safety Report 5309746-4 (Version None)
Quarter: 2007Q2

REPORT INFORMATION
  Report Type: 
  Country: None (occurrence: None)
  Receive Date: 20070427
  Receipt Date: 20060523
  Transmission Date: 20071010
  Serious: No
  Sender: FDA-Public Use
  Company Number: US-GLAXOSMITHKLINE-A0606659A

PATIENT
  Age: 69 Year
  Sex: Female

DRUGS (6)
  1. ZOFRAN [Suspect]
     Indication: PROPHYLAXIS OF NAUSEA AND VOMITING
     Dosage: 8MG PER DAY
     Route: 048
  2. LEXAPRO [Concomitant]
  3. PREMPRO [Concomitant]
  4. LIPITOR [Concomitant]
  5. METOPROLOL SUCCINATE [Concomitant]
  6. ATIVAN [Concomitant]

REACTIONS (1)
  - FLUSHING [None]
